FAERS Safety Report 5857447-6 (Version None)
Quarter: 2008Q3

REPORT INFORMATION
  Report Type: 
  Country: None (occurrence: None)
  Receive Date: 20080825
  Receipt Date: 20080825
  Transmission Date: 20090109
  Serious: Yes (Other)
  Sender: FDA-Public Use
  Company Number: None

PATIENT
  Age: 10 Year
  Sex: Male
  Weight: 61.2356 kg

DRUGS (2)
  1. LEXAPRO [Suspect]
     Indication: ANXIETY
     Dosage: 30 MILLIGRAMS ONCE DAILY PO
     Route: 048
     Dates: start: 20061015, end: 20080820
  2. LEXAPRO [Suspect]
     Indication: DEPRESSION
     Dosage: 30 MILLIGRAMS ONCE DAILY PO
     Route: 048
     Dates: start: 20061015, end: 20080820

REACTIONS (3)
  - INCREASED APPETITE [None]
  - OFF LABEL USE [None]
  - WEIGHT INCREASED [None]
